FAERS Safety Report 6967271-9 (Version None)
Quarter: 2010Q3

REPORT INFORMATION
  Report Type: 
  Country: None (occurrence: None)
  Receive Date: 20100823
  Receipt Date: 20100505
  Transmission Date: 20110219
  Serious: No
  Sender: FDA-Public Use
  Company Number: 011427

PATIENT
  Sex: Female
  Weight: 47.2 kg

DRUGS (1)
  1. CIMZIA [Suspect]
     Indication: CROHN'S DISEASE
     Dosage: 400 MG 1X/2 WEEKS SUBCUTANEOUS
     Route: 058
     Dates: start: 20100308, end: 20100407

REACTIONS (6)
  - ABDOMINAL PAIN [None]
  - ASTHENIA [None]
  - DECREASED APPETITE [None]
  - DIARRHOEA [None]
  - MIGRAINE [None]
  - VISION BLURRED [None]
